FAERS Safety Report 5636437-2 (Version None)
Quarter: 2008Q1

REPORT INFORMATION
  Report Type: 
  Country: None (occurrence: None)
  Receive Date: 20080220
  Receipt Date: 20080213
  Transmission Date: 20080703
  Serious: Yes (Death)
  Sender: FDA-Public Use
  Company Number: E2020-02254-SPO-JP

PATIENT
  Age: 51 Year
  Sex: Female
  Weight: 37.5 kg

DRUGS (7)
  1. ARICEPT [Suspect]
     Indication: DEMENTIA
     Dosage: 5 MG, 1 IN 1 D, ORAL
     Route: 048
     Dates: start: 20070801
  2. TOLEDOMIN (MILNACIPRAN HYDROCHLORIDE) [Suspect]
     Indication: DEPRESSION
     Dosage: 5 MG, 2 IN 1 D, ORAL
     Route: 048
     Dates: start: 20040101
  3. TETRAMIDE (MIANSERIN HYDROCHLORIDE) [Suspect]
     Indication: DEPRESSION
     Dosage: 20 MG, 2 IN 1 D, ORAL
     Route: 048
     Dates: start: 20040101
  4. DORAL [Concomitant]
  5. MAGLAX (MAGNESIUM OXIDE) [Concomitant]
  6. MEILAX (ETHYL LOFLAZEPATE) [Concomitant]
  7. HALCION [Concomitant]

REACTIONS (4)
  - ALTERED STATE OF CONSCIOUSNESS [None]
  - DIALYSIS [None]
  - RHABDOMYOLYSIS [None]
  - STEREOTYPY [None]
